FAERS Safety Report 5030160-3 (Version None)
Quarter: 2006Q2

REPORT INFORMATION
  Report Type: 
  Country: None (occurrence: None)
  Receive Date: 20060620
  Receipt Date: 20020117
  Transmission Date: 20061013
  Serious: Yes (Death, Hospitalization)
  Sender: FDA-Public Use
  Company Number: PHBS2002JP01027

PATIENT
  Age: 76 Year
  Sex: Female
  Weight: 46 kg

DRUGS (5)
  1. ADALAT [Concomitant]
     Dates: start: 20001228
  2. LEBENIN [Concomitant]
  3. GLEEVEC [Suspect]
     Indication: CHRONIC MYELOID LEUKAEMIA
     Dosage: 400 MG, QD
     Route: 048
     Dates: start: 20011203, end: 20020126
  4. GLEEVEC [Suspect]
     Dosage: 300 MG/DAY
     Route: 048
     Dates: start: 20020207, end: 20020306
  5. GLEEVEC [Suspect]
     Dosage: 200 MG/DAY
     Route: 048
     Dates: start: 20020307, end: 20020322

REACTIONS (19)
  - ARRHYTHMIA [None]
  - BLOOD POTASSIUM DECREASED [None]
  - C-REACTIVE PROTEIN INCREASED [None]
  - DEPRESSED LEVEL OF CONSCIOUSNESS [None]
  - DYSPNOEA [None]
  - ELECTROCARDIOGRAM QT PROLONGED [None]
  - EYELID OEDEMA [None]
  - HERPES ZOSTER [None]
  - INTERSTITIAL LUNG DISEASE [None]
  - PAIN IN EXTREMITY [None]
  - PERICARDIAL EFFUSION [None]
  - PLATELET COUNT DECREASED [None]
  - PLEURAL EFFUSION [None]
  - RASH [None]
  - TORSADE DE POINTES [None]
  - VENTRICULAR FIBRILLATION [None]
  - VENTRICULAR HYPOKINESIA [None]
  - VENTRICULAR TACHYCARDIA [None]
  - WHITE BLOOD CELL COUNT DECREASED [None]
